FAERS Safety Report 5725576-3 (Version None)
Quarter: 2008Q2

REPORT INFORMATION
  Report Type: 
  Country: None (occurrence: None)
  Receive Date: 20080501
  Receipt Date: 20080425
  Transmission Date: 20081010
  Serious: Yes (Other)
  Sender: FDA-Public Use
  Company Number: US-GENENTECH-258894

PATIENT
  Sex: Female

DRUGS (16)
  1. XOLAIR [Suspect]
     Indication: ASTHMA
     Dosage: 300 MG, UNK
     Route: 058
  2. ZYRTEC [Concomitant]
     Indication: HYPERSENSITIVITY
     Dosage: UNK, QHS
     Route: 048
     Dates: start: 20040915
  3. SINGULAIR [Concomitant]
     Indication: ASTHMA
     Dosage: UNK, QD
     Route: 048
     Dates: start: 20040915
  4. QVAR 40 [Concomitant]
     Indication: ASTHMA
     Dosage: 2 PUFF, BID
     Dates: start: 20070816
  5. ADVAIR HFA [Concomitant]
     Indication: ASTHMA
     Dosage: 1 PUFF, BID
     Dates: start: 20060918
  6. INTAL [Concomitant]
     Indication: ASTHMA
     Dosage: 4 PUFF, BID
     Dates: start: 20070808
  7. VERAMYST [Concomitant]
     Indication: HYPERSENSITIVITY
     Dosage: UNK, BID
     Route: 045
     Dates: start: 20070830
  8. XOPENEX [Concomitant]
     Indication: ASTHMA
     Dosage: UNK, PRN
     Dates: start: 20060523
  9. SALINE NASAL WASH [Concomitant]
     Indication: HYPERSENSITIVITY
     Dosage: UNK, PRN
     Dates: start: 20070412
  10. CYMBALTA [Concomitant]
     Indication: DIABETES MELLITUS
     Dosage: UNK, QD
     Route: 048
     Dates: start: 20070412
  11. CYMBALTA [Concomitant]
     Indication: NEUROPATHY PERIPHERAL
  12. NEURONTIN [Concomitant]
     Indication: NEUROPATHY PERIPHERAL
     Dosage: UNK, QD
     Route: 048
     Dates: start: 20070412
  13. NOVOLOG [Concomitant]
     Indication: DIABETES MELLITUS
     Dosage: UNK, QD
     Route: 048
     Dates: start: 20070412
  14. NOVOLIN [Concomitant]
     Indication: DIABETES MELLITUS
     Dosage: UNK, QD
     Route: 048
     Dates: start: 20070412
  15. PLAQUENIL [Concomitant]
     Indication: DRUG USE FOR UNKNOWN INDICATION
  16. CARDIOL [Concomitant]
     Indication: DRUG USE FOR UNKNOWN INDICATION

REACTIONS (3)
  - DYSPNOEA [None]
  - THROAT TIGHTNESS [None]
  - WHEEZING [None]
